FAERS Safety Report 10228585 (Version 2)
Quarter: 2015Q1

REPORT INFORMATION
  Report Type: Spontaneous
  Country: US (occurrence: US)
  Receive Date: 20140610
  Receipt Date: 20150325
  Transmission Date: 20150720
  Serious: Yes (Hospitalization, Other)
  Sender: FDA-Public Use
  Company Number: US-BAYER-2014-084954

PATIENT
  Age: 16 Year
  Sex: Female
  Weight: 58.96 kg

DRUGS (14)
  1. ZOFRAN [Concomitant]
     Active Substance: ONDANSETRON HYDROCHLORIDE
  2. IMITREX [Concomitant]
     Active Substance: SUMATRIPTAN\SUMATRIPTAN SUCCINATE
  3. PROAIR HFA [Concomitant]
     Active Substance: ALBUTEROL SULFATE
     Dosage: 2 PUFFS BEFORE EXERCISING AND EVERY 4-6 HOURS AS NEEDED
     Route: 045
     Dates: start: 20090205
  4. TORADOL [Concomitant]
     Active Substance: KETOROLAC TROMETHAMINE
  5. MIDRIN [Concomitant]
     Active Substance: ACETAMINOPHEN\DICHLORALPHENAZONE\ISOMETHEPTENE
  6. AMOXICILLIN. [Concomitant]
     Active Substance: AMOXICILLIN
  7. YAZ [Suspect]
     Active Substance: DROSPIRENONE\ETHINYL ESTRADIOL
     Indication: MENSTRUAL CYCLE MANAGEMENT
     Dosage: UNK
     Dates: start: 200806, end: 200902
  8. PREDNISONE. [Concomitant]
     Active Substance: PREDNISONE
     Dosage: 20 MG, BID FOR 5 DAYS
     Route: 048
     Dates: start: 20090208
  9. DULCOLAX [BISACODYL] [Concomitant]
     Indication: CONSTIPATION
  10. ALBUTEROL. [Concomitant]
     Active Substance: ALBUTEROL
     Dosage: UNK UNK, QD
     Route: 045
  11. FLOVENT [Concomitant]
     Active Substance: FLUTICASONE PROPIONATE
     Indication: ASTHMA
     Dosage: 2 PUFFS TWICE DAILY, QD
     Route: 045
     Dates: start: 200801, end: 200909
  12. MILK OF MAGNESIA [Concomitant]
     Active Substance: MAGNESIUM HYDROXIDE
  13. MIRALAX [Concomitant]
     Active Substance: POLYETHYLENE GLYCOL 3350
     Indication: CONSTIPATION
  14. ADVIL [Concomitant]
     Active Substance: IBUPROFEN

REACTIONS (8)
  - Superior sagittal sinus thrombosis [Recovering/Resolving]
  - Injury [Recovering/Resolving]
  - General physical health deterioration [Recovering/Resolving]
  - Pain [Recovering/Resolving]
  - Headache [Recovering/Resolving]
  - Transverse sinus thrombosis [Recovering/Resolving]
  - Thrombosis [None]
  - Abdominal pain [None]

NARRATIVE: CASE EVENT DATE: 200901
